FAERS Safety Report 11272017 (Version 2)
Quarter: 2015Q3

REPORT INFORMATION
  Report Type: Report from Study
  Country: BR (occurrence: None)
  Receive Date: 20150713
  Receipt Date: 20150721
  Transmission Date: 20151125
  Serious: Yes (Hospitalization)
  Sender: FDA-Public Use
  Company Number: 2015AP010420

PATIENT
  Age: 21 Year
  Sex: Male
  Weight: 63 kg

DRUGS (2)
  1. DEFERIPRONE (DEFERIPRONE) TABLET [Suspect]
     Active Substance: DEFERIPRONE
     Indication: IRON OVERLOAD
     Route: 048
     Dates: start: 20150406, end: 20150626
  2. DEFERIPRONE (DEFERIPRONE) TABLET [Suspect]
     Active Substance: DEFERIPRONE
     Indication: SICKLE CELL ANAEMIA
     Route: 048
     Dates: start: 20150406, end: 20150626

REACTIONS (2)
  - Sickle cell anaemia with crisis [None]
  - Pain [None]

NARRATIVE: CASE EVENT DATE: 20150627
